FAERS Safety Report 15763004 (Version 2)
Quarter: 2019Q1

REPORT INFORMATION
  Report Type: Spontaneous
  Country: AT (occurrence: AT)
  Receive Date: 20181226
  Receipt Date: 20190115
  Transmission Date: 20190417
  Serious: Yes (Other)
  Sender: FDA-Public Use
  Company Number: AT-ALLERGAN-1859365US

PATIENT
  Age: 65 Year
  Sex: Female

DRUGS (1)
  1. ESCITALOPRAM OXALATE - BP [Suspect]
     Active Substance: ESCITALOPRAM OXALATE
     Indication: PRODUCT USED FOR UNKNOWN INDICATION
     Dosage: 20 MG, QD
     Route: 065
     Dates: start: 201803

REACTIONS (5)
  - Sleep disorder [Unknown]
  - Platelet count decreased [Unknown]
  - Burnout syndrome [Unknown]
  - Serum serotonin decreased [Unknown]
  - Blood glucose increased [Unknown]
